FAERS Safety Report 7441480-7 (Version None)
Quarter: 2011Q2

REPORT INFORMATION
  Report Type: 
  Country: None (occurrence: None)
  Receive Date: 20110426
  Receipt Date: 20110426
  Transmission Date: 20111010
  Serious: No
  Sender: FDA-Public Use
  Company Number: None

PATIENT
  Sex: Female
  Weight: 85.2 kg

DRUGS (23)
  1. ACETAMINOPHEN [Concomitant]
  2. COMPAZINE [Concomitant]
  3. SUMATRIPTAN SUCCINATE [Concomitant]
  4. MERCAPTOPURINE [Suspect]
     Dosage: 60 MG
  5. ATIVAN [Concomitant]
  6. INSULIN LISPRO [Concomitant]
  7. MS CONTIN [Concomitant]
  8. SODIUM CHLORIDE [Concomitant]
  9. NEURONTIN [Concomitant]
  10. TOPRAL-XL [Concomitant]
  11. ADDERALL 10 [Concomitant]
  12. LISINOPRIL [Concomitant]
  13. VINCRISTINE SULFATE [Suspect]
     Dosage: 2 MG
  14. BENADRYL [Concomitant]
  15. DILAUDID [Concomitant]
  16. FLUCONAZOLE [Concomitant]
  17. MARINOL [Concomitant]
  18. VALTREX [Concomitant]
  19. FLEXXERIL [Concomitant]
  20. MORPHINE [Concomitant]
  21. METHOTREXATE [Suspect]
     Dosage: 15 MG
  22. PHENERGAN HCL [Concomitant]
  23. PRILOSEC [Concomitant]

REACTIONS (3)
  - NAUSEA [None]
  - ARTHRALGIA [None]
  - STOMATITIS [None]
